FAERS Safety Report 18507125 (Version 1)
Quarter: 2020Q4

REPORT INFORMATION
  Report Type: Spontaneous
  Country: US (occurrence: US)
  Receive Date: 20201112
  Receipt Date: 20201112
  Transmission Date: 20210114
  Serious: No
  Sender: FDA-Public Use
  Company Number: None

PATIENT
  Age: 54 Year
  Sex: Female

DRUGS (1)
  1. HUMIRA [Suspect]
     Active Substance: ADALIMUMAB
     Indication: RHEUMATOID ARTHRITIS
     Route: 058
     Dates: start: 202007, end: 20201111

REACTIONS (5)
  - Rash [None]
  - Therapy interrupted [None]
  - Swelling face [None]
  - Chest discomfort [None]
  - Fall [None]

NARRATIVE: CASE EVENT DATE: 202009
